FAERS Safety Report 5100622-9 (Version None)
Quarter: 2006Q3

REPORT INFORMATION
  Report Type: 
  Country: None (occurrence: None)
  Receive Date: 20060906
  Receipt Date: 20060825
  Transmission Date: 20061208
  Serious: Yes (Hospitalization)
  Sender: FDA-Public Use
  Company Number: 2006BH013107

PATIENT
  Age: 76 Year
  Sex: Female
  Weight: 43.0917 kg

DRUGS (7)
  1. EXTRANEAL [Suspect]
     Indication: PERITONEAL DIALYSIS
     Dosage: IP
     Route: 033
  2. GLYBURIDE [Concomitant]
  3. TOPROL-XL [Concomitant]
  4. PLAVIX [Concomitant]
  5. NORVASC [Concomitant]
  6. ZOCOR [Concomitant]
  7. SENSIPAR [Concomitant]

REACTIONS (4)
  - BLOOD GLUCOSE DECREASED [None]
  - DEVICE INTERACTION [None]
  - MEDICAL DEVICE COMPLICATION [None]
  - PHARMACEUTICAL PRODUCT COMPLAINT [None]
